FAERS Safety Report 16419677 (Version 5)
Quarter: 2020Q1

REPORT INFORMATION
  Report Type: Report from Study
  Country: BR (occurrence: BR)
  Receive Date: 20190612
  Receipt Date: 20200127
  Transmission Date: 20200409
  Serious: Yes (Hospitalization, Other)
  Sender: FDA-Public Use
  Company Number: PHHY2018BR163957

PATIENT
  Age: 46 Year
  Sex: Male
  Weight: 93 kg

DRUGS (2)
  1. COSENTYX [Suspect]
     Active Substance: SECUKINUMAB
     Dosage: 2 DF, UNK
     Route: 065
     Dates: start: 201905
  2. COSENTYX [Suspect]
     Active Substance: SECUKINUMAB
     Indication: PSORIATIC ARTHROPATHY
     Dosage: 2 DF, UNK
     Route: 058
     Dates: start: 201811

REACTIONS (13)
  - Psoriasis [Recovering/Resolving]
  - Localised infection [Recovering/Resolving]
  - Skin exfoliation [Recovering/Resolving]
  - Epidermolysis [Recovering/Resolving]
  - Peau d^orange [Recovered/Resolved]
  - Dermatitis exfoliative generalised [Unknown]
  - Psoriatic arthropathy [Recovering/Resolving]
  - Skin swelling [Recovering/Resolving]
  - Panniculitis [Recovered/Resolved]
  - Dermatitis [Unknown]
  - Skin infection [Unknown]
  - Weight decreased [Recovering/Resolving]
  - Therapeutic product effect incomplete [Unknown]

NARRATIVE: CASE EVENT DATE: 201812
